FAERS Safety Report 10195947 (Version 2)
Quarter: 2014Q2

REPORT INFORMATION
  Report Type: Spontaneous
  Country: JP (occurrence: JP)
  Receive Date: 20140527
  Receipt Date: 20140602
  Transmission Date: 20141212
  Serious: Yes (Death)
  Sender: FDA-Public Use
  Company Number: JP-JNJFOC-20140507531

PATIENT
  Age: 7 Decade
  Sex: Female

DRUGS (3)
  1. RISPERDAL CONSTA [Suspect]
     Indication: PRODUCT USED FOR UNKNOWN INDICATION
     Route: 030
     Dates: start: 201404
  2. AMOBAN [Concomitant]
     Route: 048
  3. BARNETIL [Concomitant]
     Route: 048

REACTIONS (1)
  - Myocardial infarction [Fatal]
